FAERS Safety Report 5046877-0 (Version None)
Quarter: 2006Q3

REPORT INFORMATION
  Report Type: 
  Country: None (occurrence: None)
  Receive Date: 20060710
  Receipt Date: 20060615
  Transmission Date: 20061208
  Serious: Yes (Other)
  Sender: FDA-Public Use
  Company Number: GB-ABBOTT-06P-167-0336514-00

PATIENT
  Sex: Male
  Weight: 79.5 kg

DRUGS (4)
  1. HUMIRA [Suspect]
     Indication: DRUG USE FOR UNKNOWN INDICATION
     Route: 058
     Dates: start: 20040524, end: 20040901
  2. PROPRANOLOL HYDROCHLORIDE [Concomitant]
     Indication: DRUG USE FOR UNKNOWN INDICATION
     Route: 048
  3. ACETYLSALICYLIC ACID SRT [Concomitant]
     Indication: DRUG USE FOR UNKNOWN INDICATION
     Route: 048
  4. ENTERCEPT [Concomitant]
     Indication: DRUG USE FOR UNKNOWN INDICATION
     Route: 058
     Dates: start: 20050303

REACTIONS (3)
  - HAEMATOLOGY TEST ABNORMAL [None]
  - HAEMOCHROMATOSIS [None]
  - THROMBOCYTOPENIA [None]
